FAERS Safety Report 9319621 (Version 14)
Quarter: 2017Q1

REPORT INFORMATION
  Report Type: Spontaneous
  Country: US (occurrence: US)
  Receive Date: 20130530
  Receipt Date: 20170320
  Transmission Date: 20170429
  Serious: Yes (Hospitalization, Other)
  Sender: FDA-Public Use
  Company Number: US-GLAXOSMITHKLINE-A1013859A

PATIENT
  Age: 59 Year
  Sex: Female

DRUGS (18)
  1. FLOLAN [Suspect]
     Active Substance: EPOPROSTENOL SODIUM
     Dosage: UNK
     Dates: start: 19990809
  2. FLOLAN [Suspect]
     Active Substance: EPOPROSTENOL SODIUM
     Dosage: 75 DF, CO
     Route: 042
  3. FLOLAN [Suspect]
     Active Substance: EPOPROSTENOL SODIUM
     Indication: PULMONARY HYPERTENSION
     Dosage: UNK, CO
     Route: 042
  4. FLOLAN [Suspect]
     Active Substance: EPOPROSTENOL SODIUM
     Dosage: UNK
     Dates: start: 19990809
  5. FLOLAN [Suspect]
     Active Substance: EPOPROSTENOL SODIUM
     Dosage: UNK
     Dates: start: 19990809
  6. FLOLAN [Suspect]
     Active Substance: EPOPROSTENOL SODIUM
     Dosage: UNK
     Dates: start: 19990809
  7. FLOLAN [Suspect]
     Active Substance: EPOPROSTENOL SODIUM
     Dosage: 49 DF, UNK
  8. FLOLAN [Suspect]
     Active Substance: EPOPROSTENOL SODIUM
     Dosage: 49 DF, CO
  9. FLOLAN [Suspect]
     Active Substance: EPOPROSTENOL SODIUM
     Dosage: UNK
     Dates: start: 19990809
  10. FLOLAN [Suspect]
     Active Substance: EPOPROSTENOL SODIUM
     Dosage: 49 NG/KG/MIN CONTINUOUSLY
     Route: 042
  11. FLOLAN [Suspect]
     Active Substance: EPOPROSTENOL SODIUM
     Dosage: UNK, CO
  12. ADCIRCA [Concomitant]
     Active Substance: TADALAFIL
  13. FLOLAN [Suspect]
     Active Substance: EPOPROSTENOL SODIUM
     Indication: COR PULMONALE CHRONIC
     Dosage: 48 NG/KG/MIN
     Route: 042
     Dates: start: 19990809
  14. FLOLAN [Suspect]
     Active Substance: EPOPROSTENOL SODIUM
     Indication: PULMONARY HYPERTENSION
     Dosage: UNK
     Dates: start: 19990809
  15. FLOLAN [Suspect]
     Active Substance: EPOPROSTENOL SODIUM
     Dosage: UNK
     Dates: start: 19990809
  16. FLOLAN [Suspect]
     Active Substance: EPOPROSTENOL SODIUM
     Dosage: 49NG/KG/MIN (CONCENTRATION 60,000 NG/ML, PUMP RATE 75 ML/DAY, VIAL STRENGTH 1.5 MG) CO
     Route: 042
  17. FLOLAN [Suspect]
     Active Substance: EPOPROSTENOL SODIUM
     Dosage: UNK
  18. LASIX [Concomitant]
     Active Substance: FUROSEMIDE

REACTIONS (22)
  - Irritable bowel syndrome [Not Recovered/Not Resolved]
  - Ligament sprain [Unknown]
  - Flushing [Unknown]
  - Ankle fracture [Unknown]
  - Influenza [Not Recovered/Not Resolved]
  - Sinusitis [Unknown]
  - Cellulitis [Unknown]
  - Cough [Unknown]
  - Fall [Unknown]
  - Balance disorder [Unknown]
  - Biopsy thyroid gland [Unknown]
  - Ligament sprain [Not Recovered/Not Resolved]
  - Malaise [Not Recovered/Not Resolved]
  - Gallbladder disorder [Unknown]
  - Nasopharyngitis [Not Recovered/Not Resolved]
  - Oral surgery [Recovered/Resolved]
  - Fatigue [Not Recovered/Not Resolved]
  - Lower respiratory tract infection [Unknown]
  - Foot fracture [Unknown]
  - Thyroid mass [Unknown]
  - Abdominal pain [Unknown]
  - Wheezing [Unknown]

NARRATIVE: CASE EVENT DATE: 2013
